FAERS Safety Report 8013315-5 (Version None)
Quarter: 2011Q4

REPORT INFORMATION
  Report Type: 
  Country: None (occurrence: None)
  Receive Date: 20111223
  Receipt Date: 20111214
  Transmission Date: 20120403
  Serious: Yes (Other)
  Sender: FDA-Public Use
  Company Number: AMAG201100260

PATIENT
  Age: 66 Year
  Sex: Female
  Weight: 86.6 kg

DRUGS (7)
  1. DIGOXIN [Concomitant]
  2. FOLATE SODIUM [Concomitant]
  3. CARDIZEM [Concomitant]
  4. FERAHEME [Suspect]
     Indication: IRON DEFICIENCY
     Dosage: 10 ML, SINGLE, IV BOLUS
     Route: 040
     Dates: start: 20111213, end: 20111213
  5. COUMADIN [Concomitant]
  6. FUROSEMIDE (FUROSEMIDE SODIUM) [Concomitant]
  7. TOPROL-XL [Concomitant]

REACTIONS (15)
  - HYPERSENSITIVITY [None]
  - DYSPNOEA [None]
  - PULSE ABSENT [None]
  - UNRESPONSIVE TO STIMULI [None]
  - HYPOVENTILATION [None]
  - MUSCULOSKELETAL DISCOMFORT [None]
  - URINARY INCONTINENCE [None]
  - INFUSION RELATED REACTION [None]
  - BLOOD PRESSURE INCREASED [None]
  - MUSCLE CONTRACTIONS INVOLUNTARY [None]
  - ATRIAL FIBRILLATION [None]
  - CYANOSIS [None]
  - BACK PAIN [None]
  - HYPOXIA [None]
  - EYE MOVEMENT DISORDER [None]
